FAERS Safety Report 5283616-2 (Version None)
Quarter: 2007Q1

REPORT INFORMATION
  Report Type: 
  Country: None (occurrence: None)
  Receive Date: 20070329
  Receipt Date: 20070329
  Transmission Date: 20070707
  Serious: Yes (Hospitalization)
  Sender: FDA-Public Use
  Company Number: None

PATIENT
  Age: 47 Year
  Sex: Male
  Weight: 98.4306 kg

DRUGS (4)
  1. PAROXETINE [Suspect]
     Indication: DEPRESSION
     Dosage: 20 MG DAILY PO
     Route: 048
     Dates: start: 20060912, end: 20070221
  2. QUETIAPINE 200 MG [Suspect]
     Indication: DEPRESSION
     Dosage: 200 MG DAILY PO
     Route: 048
     Dates: start: 20060912, end: 20070221
  3. FELODIPINE [Concomitant]
  4. TRAMADOL HCL [Concomitant]

REACTIONS (1)
  - GRAND MAL CONVULSION [None]
